FAERS Safety Report 6104048-0 (Version None)
Quarter: 2009Q1

REPORT INFORMATION
  Report Type: 
  Country: None (occurrence: None)
  Receive Date: 20090227
  Receipt Date: 20080228
  Transmission Date: 20090719
  Serious: Yes (Hospitalization)
  Sender: FDA-Public Use
  Company Number: 527488

PATIENT
  Age: 17 Year
  Sex: Male
  Weight: 77.1 kg

DRUGS (1)
  1. ACCUTANE [Suspect]
     Indication: ACNE
     Dates: start: 19961029, end: 20011224

REACTIONS (9)
  - ANAEMIA [None]
  - COLITIS [None]
  - COLITIS ULCERATIVE [None]
  - DEPRESSION [None]
  - HEADACHE [None]
  - INFLAMMATORY BOWEL DISEASE [None]
  - PROCTITIS [None]
  - SINUSITIS [None]
  - TIBIA FRACTURE [None]
